FAERS Safety Report 5740222-0 (Version None)
Quarter: 2008Q2

REPORT INFORMATION
  Report Type: 
  Country: None (occurrence: None)
  Receive Date: 20080513
  Receipt Date: 20080509
  Transmission Date: 20081010
  Serious: Yes (Other)
  Sender: FDA-Public Use
  Company Number: 2006-06388

PATIENT
  Age: 33 Year
  Sex: Female

DRUGS (3)
  1. FORTAMET [Suspect]
     Indication: DIABETES MELLITUS
     Dosage: 1 G, BID, ORAL
     Route: 048
  2. PIOGLITAZONE HCL [Suspect]
     Indication: DIABETES MELLITUS
     Dosage: 45 MG, QDAY,
  3. PREDNISOLONE [Suspect]
     Indication: UVEITIS
     Dosage: DF QDAY

REACTIONS (4)
  - ANEURYSM [None]
  - DIABETES MELLITUS INADEQUATE CONTROL [None]
  - DRUG INEFFECTIVE [None]
  - MACULAR OEDEMA [None]
